FAERS Safety Report 10712418 (Version 1)
Quarter: 2015Q1

REPORT INFORMATION
  Report Type: Report from Study
  Country: CL (occurrence: CL)
  Receive Date: 20150115
  Receipt Date: 20150115
  Transmission Date: 20150721
  Serious: Yes (Other)
  Sender: FDA-Public Use
  Company Number: CL-ROCHE-1521572

PATIENT
  Age: 74 Year
  Sex: Male
  Weight: 78 kg

DRUGS (1)
  1. XELODA [Suspect]
     Active Substance: CAPECITABINE
     Indication: COLORECTAL CANCER
     Dosage: 14 DAYS PER CYCLE
     Route: 048
     Dates: start: 20141030

REACTIONS (3)
  - Diabetes mellitus [Not Recovered/Not Resolved]
  - Blood glucose increased [Unknown]
  - Blood cholesterol increased [Unknown]
